FAERS Safety Report 13688098 (Version 10)
Quarter: 2017Q4

REPORT INFORMATION
  Report Type: Spontaneous
  Country: US (occurrence: US)
  Receive Date: 20170626
  Receipt Date: 20171214
  Transmission Date: 20180320
  Serious: No
  Sender: FDA-Public Use
  Company Number: US-PFIZER INC-2017272857

PATIENT
  Age: 56 Year
  Sex: Female
  Weight: 65 kg

DRUGS (7)
  1. SUTENT [Suspect]
     Active Substance: SUNITINIB MALATE
     Dosage: 37.5 MG, CYCLIC (2 WEEKS OFF INSTEAD OF 1)
     Dates: start: 2017
  2. SUTENT [Suspect]
     Active Substance: SUNITINIB MALATE
     Dosage: 37.5 MG, CYCLIC (2 WEEKS ON/1 WEEK OFF )
     Dates: start: 20170619
  3. SUTENT [Suspect]
     Active Substance: SUNITINIB MALATE
     Indication: METASTASES TO BONE
     Dosage: 50 MG, CYCLIC (2 WEEKS ON/1 WEEK OFF)
     Dates: start: 2017
  4. AMLODIPINE [Concomitant]
     Active Substance: AMLODIPINE BESYLATE
     Dosage: UNK
     Dates: start: 20170717
  5. TYLENOL [Concomitant]
     Active Substance: ACETAMINOPHEN
     Dosage: UNK
  6. LEVOTHYROXINE. [Concomitant]
     Active Substance: LEVOTHYROXINE
     Indication: METASTATIC RENAL CELL CARCINOMA
     Dosage: UNK
     Dates: start: 20170906
  7. SUTENT [Suspect]
     Active Substance: SUNITINIB MALATE
     Indication: RENAL CANCER STAGE IV
     Dosage: 50 MG, CYCLIC (28 DAYS ON/14 DAYS OFF)
     Dates: start: 20170619, end: 2017

REACTIONS (39)
  - Hot flush [Unknown]
  - Eye disorder [Not Recovered/Not Resolved]
  - Oral pain [Unknown]
  - Asthenia [Unknown]
  - Decreased appetite [Recovering/Resolving]
  - Skin irritation [Unknown]
  - Thyroid disorder [Recovering/Resolving]
  - Platelet count decreased [Recovering/Resolving]
  - Insomnia [Unknown]
  - Condition aggravated [Unknown]
  - Haemorrhoids [Unknown]
  - Weight decreased [Unknown]
  - Alopecia [Unknown]
  - Pain in extremity [Unknown]
  - Urinary tract infection [Unknown]
  - Fatigue [Unknown]
  - Yellow skin [Unknown]
  - Skin exfoliation [Unknown]
  - Eyelash discolouration [Recovering/Resolving]
  - Feeling abnormal [Unknown]
  - Dysgeusia [Recovered/Resolved]
  - Arthralgia [Recovering/Resolving]
  - Oral disorder [Not Recovered/Not Resolved]
  - Rhinalgia [Unknown]
  - Gingival pain [Unknown]
  - Dry mouth [Unknown]
  - Hair colour changes [Unknown]
  - Muscular weakness [Unknown]
  - Peripheral swelling [Unknown]
  - Epistaxis [Unknown]
  - Blood pressure increased [Recovering/Resolving]
  - Dry skin [Not Recovered/Not Resolved]
  - Pain in extremity [Recovering/Resolving]
  - Blister [Recovering/Resolving]
  - Pain [Unknown]
  - Nasal dryness [Unknown]
  - Nasal disorder [Not Recovered/Not Resolved]
  - Eye pain [Unknown]
  - Weight decreased [Unknown]

NARRATIVE: CASE EVENT DATE: 2017
